FAERS Safety Report 17902538 (Version 1)
Quarter: 2020Q2

REPORT INFORMATION
  Report Type: Spontaneous
  Country: US (occurrence: US)
  Receive Date: 20200616
  Receipt Date: 20200616
  Transmission Date: 20200714
  Serious: No
  Sender: FDA-Public Use
  Company Number: US-PFIZER INC-2018038727

PATIENT
  Age: 61 Year
  Sex: Female
  Weight: 158.7 kg

DRUGS (2)
  1. LYRICA [Suspect]
     Active Substance: PREGABALIN
     Dosage: 2 DF, 2X/DAY (150, TWO CAPSULES IN THE MORNING AND TWO CAPSULES AT NIGHT)
  2. LYRICA [Suspect]
     Active Substance: PREGABALIN
     Indication: TRIGEMINAL NEURALGIA
     Dosage: 300 MG, 3X/DAY (150 MG CAPSULES 2 CAPSULES THREE TIMES A DAY)
     Route: 048

REACTIONS (3)
  - Prescribed overdose [Unknown]
  - Intentional product misuse [Unknown]
  - Facial pain [Unknown]
